FAERS Safety Report 6972894-7 (Version None)
Quarter: 2010Q3

REPORT INFORMATION
  Report Type: 
  Country: None (occurrence: None)
  Receive Date: 20100909
  Receipt Date: 20100901
  Transmission Date: 20110219
  Serious: Yes (Other)
  Sender: FDA-Public Use
  Company Number: US-PFIZER INC-2008058993

PATIENT
  Sex: Female
  Weight: 81 kg

DRUGS (7)
  1. PROVERA [Suspect]
     Indication: HORMONE REPLACEMENT THERAPY
     Dosage: 10 MG, UNK
     Route: 048
     Dates: start: 19910901, end: 19920601
  2. PROVERA [Suspect]
     Dosage: 2.5 MG, UNK
     Dates: start: 19921001, end: 19930701
  3. PREMARIN [Suspect]
     Indication: HORMONE REPLACEMENT THERAPY
     Dosage: 0.625 MG, UNK
     Dates: start: 19910901, end: 19920601
  4. ESTRACE [Suspect]
     Dosage: UNK
     Dates: start: 19920301, end: 19930701
  5. PREMPRO [Suspect]
     Dosage: UNK
     Dates: start: 19960101, end: 20100101
  6. PRINZIDE [Concomitant]
     Indication: HYPERTENSION
     Dosage: UNK
     Dates: start: 19730101
  7. ZOLOFT [Concomitant]
     Indication: DEPRESSION
     Dosage: 100 MG, UNK
     Dates: start: 19880101

REACTIONS (1)
  - BREAST CANCER FEMALE [None]
